FAERS Safety Report 13272222 (Version 2)
Quarter: 2017Q1

REPORT INFORMATION
  Report Type: Spontaneous
  Country: US (occurrence: US)
  Receive Date: 20170227
  Receipt Date: 20170309
  Transmission Date: 20170428
  Serious: Yes (Hospitalization)
  Sender: FDA-Public Use
  Company Number: US-UNITED THERAPEUTICS-UNT-2017-002483

PATIENT
  Age: 67 Year
  Sex: Female
  Weight: 81.18 kg

DRUGS (2)
  1. ADCIRCA [Concomitant]
     Active Substance: TADALAFIL
     Indication: PRODUCT USED FOR UNKNOWN INDICATION
  2. REMODULIN [Suspect]
     Active Substance: TREPROSTINIL
     Indication: PULMONARY ARTERIAL HYPERTENSION
     Dosage: 0.025 ?G/KG, CONTINUING
     Route: 058
     Dates: start: 20101228

REACTIONS (6)
  - Oxygen saturation decreased [Unknown]
  - Endoscopy [Unknown]
  - Gastric haemorrhage [Unknown]
  - Anaemia [Unknown]
  - Device occlusion [Unknown]
  - Fatigue [Unknown]

NARRATIVE: CASE EVENT DATE: 201702
